FAERS Safety Report 14797017 (Version 1)
Quarter: 2018Q2

REPORT INFORMATION
  Report Type: Spontaneous
  Country: US (occurrence: US)
  Receive Date: 20180423
  Receipt Date: 20180423
  Transmission Date: 20180711
  Serious: Yes (Hospitalization)
  Sender: FDA-Public Use
  Company Number: US-SA-2017SA119588

PATIENT
  Sex: Male
  Weight: 76.1 kg

DRUGS (8)
  1. PEMBROLIZUMAB. [Suspect]
     Active Substance: PEMBROLIZUMAB
     Indication: RENAL NEOPLASM
     Route: 042
     Dates: start: 20170327, end: 20170327
  2. KLONOPIN [Concomitant]
     Active Substance: CLONAZEPAM
  3. OMEPRAZOLE. [Concomitant]
     Active Substance: OMEPRAZOLE
  4. ATENOLOL. [Concomitant]
     Active Substance: ATENOLOL
     Route: 065
     Dates: start: 20170509
  5. PEMBROLIZUMAB. [Suspect]
     Active Substance: PEMBROLIZUMAB
     Indication: RENAL NEOPLASM
     Route: 042
     Dates: start: 20170508, end: 20170508
  6. PANTOPRAZOLE [Concomitant]
     Active Substance: PANTOPRAZOLE
     Route: 065
     Dates: start: 20170509
  7. LOVENOX [Suspect]
     Active Substance: ENOXAPARIN SODIUM
     Indication: DEEP VEIN THROMBOSIS
     Route: 058
     Dates: start: 2016, end: 20170509
  8. BLINDED THERAPY [Suspect]
     Active Substance: INVESTIGATIONAL PRODUCT
     Indication: RENAL NEOPLASM
     Route: 048
     Dates: start: 20170327, end: 20170509

REACTIONS (7)
  - Gastrointestinal haemorrhage [Recovering/Resolving]
  - Gastrointestinal haemorrhage [Not Recovered/Not Resolved]
  - Upper gastrointestinal haemorrhage [Recovering/Resolving]
  - Haematochezia [Unknown]
  - Anaemia [Recovered/Resolved]
  - Thrombosis [Unknown]
  - Dizziness [Unknown]

NARRATIVE: CASE EVENT DATE: 20170509
